FAERS Safety Report 4349462-9 (Version None)
Quarter: 2004Q2

REPORT INFORMATION
  Report Type: 
  Country: None (occurrence: None)
  Receive Date: 20040426
  Receipt Date: 20040415
  Transmission Date: 20050107
  Serious: Yes (Hospitalization)
  Sender: FDA-Public Use
  Company Number: 2004UW06002

PATIENT
  Age: 47 Year
  Sex: Male
  Weight: 85.7298 kg

DRUGS (7)
  1. CRESTOR [Suspect]
     Indication: LIPIDS INCREASED
     Dates: start: 20031201
  2. PLAVIX [Suspect]
     Indication: CEREBROVASCULAR ACCIDENT
  3. LIPITOR [Suspect]
  4. CIALIS [Concomitant]
  5. ALTACE [Concomitant]
  6. HUMULIN N [Concomitant]
  7. HUMALOG [Concomitant]

REACTIONS (2)
  - DRUG INTERACTION [None]
  - GASTRITIS HAEMORRHAGIC [None]
